FAERS Safety Report 16795045 (Version 1)
Quarter: 2019Q3

REPORT INFORMATION
  Report Type: Spontaneous
  Country: US (occurrence: US)
  Receive Date: 20190911
  Receipt Date: 20190911
  Transmission Date: 20191005
  Serious: Yes (Other)
  Sender: FDA-Public Use
  Company Number: US-PFIZER INC-2019390616

PATIENT
  Sex: Female

DRUGS (3)
  1. PACLITAXEL. [Suspect]
     Active Substance: PACLITAXEL
     Indication: OVARIAN CANCER
     Dosage: 6-CYCLES CHEMOTHERAPY WITH PACLITAXEL AND CARBOPLATIN
  2. CARBOPLATIN. [Suspect]
     Active Substance: CARBOPLATIN
     Indication: OVARIAN CANCER
     Dosage: 6-CYCLES CHEMOTHERAPY WITH PACLITAXEL AND CARBOPLATIN
  3. PACLITAXEL. [Suspect]
     Active Substance: PACLITAXEL
     Dosage: 2 CYCLES PACLITAXEL MAINTENANCE
     Dates: end: 201804

REACTIONS (2)
  - Neoplasm recurrence [Unknown]
  - Neutropenia [Unknown]
